FAERS Safety Report 17218069 (Version 2)
Quarter: 2020Q1

REPORT INFORMATION
  Report Type: Spontaneous
  Country: US (occurrence: US)
  Receive Date: 20191231
  Receipt Date: 20200115
  Transmission Date: 20200409
  Serious: Yes (Other)
  Sender: FDA-Public Use
  Company Number: US-ROCHE-2504232

PATIENT
  Sex: Male
  Weight: 83.08 kg

DRUGS (6)
  1. CLONAZEPAM. [Suspect]
     Active Substance: CLONAZEPAM
     Indication: ANXIETY
     Dosage: ONGOING NO
     Route: 048
     Dates: start: 2017
  2. KLONOPIN [Suspect]
     Active Substance: CLONAZEPAM
     Indication: SUBSTANCE ABUSE
  3. KLONOPIN [Suspect]
     Active Substance: CLONAZEPAM
     Indication: ANXIETY
  4. CLONAZEPAM. [Suspect]
     Active Substance: CLONAZEPAM
     Indication: SUBSTANCE ABUSE
     Dosage: ONGOING YES
     Route: 048
     Dates: start: 201912
  5. KLONOPIN [Suspect]
     Active Substance: CLONAZEPAM
     Indication: FIBROMYALGIA
     Dosage: ONGOING NO
     Route: 065
     Dates: start: 2019, end: 2019
  6. CLONAZEPAM. [Suspect]
     Active Substance: CLONAZEPAM
     Indication: FIBROMYALGIA
     Dosage: ONGOING NO
     Route: 048
     Dates: start: 2010, end: 2016

REACTIONS (17)
  - Rotator cuff syndrome [Not Recovered/Not Resolved]
  - Amnesia [Not Recovered/Not Resolved]
  - Weight increased [Not Recovered/Not Resolved]
  - Confusional state [Not Recovered/Not Resolved]
  - Attention deficit/hyperactivity disorder [Not Recovered/Not Resolved]
  - Abdominal pain [Recovered/Resolved]
  - Constipation [Recovered/Resolved]
  - Dysgeusia [Not Recovered/Not Resolved]
  - Subdural haematoma [Recovered/Resolved]
  - Post-traumatic neck syndrome [Recovered/Resolved]
  - Insomnia [Unknown]
  - Drug tolerance [Recovered/Resolved]
  - Anxiety [Recovering/Resolving]
  - Cervical vertebral fracture [Recovered/Resolved]
  - Urinary hesitation [Recovered/Resolved]
  - Pain [Recovered/Resolved]
  - Hernia [Recovered/Resolved]

NARRATIVE: CASE EVENT DATE: 2011
